FAERS Safety Report 8129761-5 (Version None)
Quarter: 2012Q1

REPORT INFORMATION
  Report Type: 
  Country: None (occurrence: None)
  Receive Date: 20120210
  Receipt Date: 20120127
  Transmission Date: 20120608
  Serious: Yes (Hospitalization)
  Sender: FDA-Public Use
  Company Number: DE-TEVA-320313GER

PATIENT
  Age: 60 Year
  Sex: Female
  Weight: 71 kg

DRUGS (11)
  1. RAMIPRIL [Suspect]
     Dosage: 5 MILLIGRAM;
     Route: 048
  2. BISOPROLOL FUMARATE [Suspect]
     Dosage: 5 MILLIGRAM;
     Route: 048
  3. FLUOROURACIL [Suspect]
     Dosage: 2400 MG/M2;
     Route: 042
     Dates: start: 20111010, end: 20111121
  4. IRINOTECAN HCL [Suspect]
     Dosage: 180 MG/M2;
     Route: 042
     Dates: start: 20111010, end: 20111121
  5. FLUOROURACIL [Suspect]
     Indication: COLORECTAL CANCER METASTATIC
     Dosage: 750 MILLIGRAM;
     Route: 042
     Dates: start: 20111010, end: 20111121
  6. FLUOROURACIL [Suspect]
     Dosage: 4490 MILLIGRAM;
     Route: 042
     Dates: start: 20111010, end: 20111121
  7. FLUOROURACIL [Suspect]
     Dosage: 2400 MG/M2;
     Route: 042
     Dates: start: 20111010, end: 20111121
  8. LEUCOVORIN CALCIUM [Suspect]
     Indication: COLORECTAL CANCER METASTATIC
     Dosage: 400 MG/M2;
     Route: 042
     Dates: start: 20111010, end: 20111121
  9. BEVACIZUMAB [Suspect]
     Dosage: 5 MG/KG;
     Route: 042
     Dates: start: 20111010, end: 20111121
  10. IRINOTECAN HCL [Suspect]
     Indication: COLORECTAL CANCER METASTATIC
     Dosage: 335 MILLIGRAM;
     Route: 042
     Dates: start: 20111010, end: 20111021
  11. BEVACIZUMAB [Suspect]
     Indication: COLORECTAL CANCER METASTATIC
     Dosage: 400 MILLIGRAM;
     Route: 042
     Dates: start: 20111010, end: 20111121

REACTIONS (1)
  - GENERAL PHYSICAL HEALTH DETERIORATION [None]
